FAERS Safety Report 18744124 (Version 1)
Quarter: 2021Q1

REPORT INFORMATION
  Report Type: Spontaneous
  Country: US (occurrence: US)
  Receive Date: 20210114
  Receipt Date: 20210114
  Transmission Date: 20210419
  Serious: Yes (Other)
  Sender: FDA-Public Use
  Company Number: US-BEH-2021126965

PATIENT
  Sex: Female

DRUGS (4)
  1. HIZENTRA [Suspect]
     Active Substance: HUMAN IMMUNOGLOBULIN G
     Dosage: 6 GRAM (30 ML), QOW FOR WEEK 2 AND 4
     Route: 058
     Dates: start: 20200227
  2. HIZENTRA [Suspect]
     Active Substance: HUMAN IMMUNOGLOBULIN G
     Dosage: 6 GRAM (30 ML), QOW FOR WEEK 2 AND 4
     Route: 058
     Dates: start: 20191024
  3. HIZENTRA [Suspect]
     Active Substance: HUMAN IMMUNOGLOBULIN G
     Indication: IMMUNODEFICIENCY COMMON VARIABLE
     Dosage: 7 GRAM (35 ML), QOW, FOR WEEK 1 AND 3
     Route: 058
     Dates: start: 20191024
  4. HIZENTRA [Suspect]
     Active Substance: HUMAN IMMUNOGLOBULIN G
     Dosage: 7 GRAM (35 ML), QOW, FOR WEEK 1 AND 3
     Route: 058
     Dates: start: 20200227

REACTIONS (3)
  - Immobile [Unknown]
  - Elbow operation [Unknown]
  - Staphylococcal infection [Not Recovered/Not Resolved]
